FAERS Safety Report 25981691 (Version 1)
Quarter: 2025Q4

REPORT INFORMATION
  Report Type: Spontaneous
  Country: CA (occurrence: CA)
  Receive Date: 20251031
  Receipt Date: 20251031
  Transmission Date: 20260118
  Serious: Yes (Other)
  Sender: ACCORD
  Company Number: None

PATIENT
  Age: 53 Year
  Sex: Male

DRUGS (3)
  1. METHOTREXATE [Suspect]
     Active Substance: METHOTREXATE
     Indication: Product used for unknown indication
     Dosage: THERAPY DURATION: 700.0
  2. ARAVA [Concomitant]
     Active Substance: LEFLUNOMIDE
  3. UPADACITINIB [Concomitant]
     Active Substance: UPADACITINIB
     Dosage: EXTENDED RELEASE

REACTIONS (4)
  - Drug ineffective [Unknown]
  - Interstitial lung disease [Unknown]
  - Rheumatoid arthritis [Unknown]
  - Cellulitis [Unknown]
